FAERS Safety Report 23867963 (Version 1)
Quarter: 2024Q2

REPORT INFORMATION
  Report Type: Spontaneous
  Country: JP (occurrence: None)
  Receive Date: 20240517
  Receipt Date: 20240517
  Transmission Date: 20240716
  Serious: Yes (Other)
  Sender: FDA-Public Use
  Company Number: 2024A112842

PATIENT
  Sex: Male

DRUGS (1)
  1. CRESTOR [Suspect]
     Active Substance: ROSUVASTATIN CALCIUM
     Dosage: DOSE UNKNOWN
     Route: 048
     Dates: end: 20230410

REACTIONS (14)
  - Coronary artery occlusion [Unknown]
  - Coronary artery stenosis [Unknown]
  - Extrasystoles [Recovering/Resolving]
  - Hypoaesthesia [Unknown]
  - Sleep disorder due to a general medical condition [Unknown]
  - Arthropathy [Unknown]
  - Movement disorder [Unknown]
  - Strabismus [Recovered/Resolved]
  - Dizziness [Recovered/Resolved]
  - Gait disturbance [Unknown]
  - Muscular weakness [Unknown]
  - Fatigue [Unknown]
  - Pain [Unknown]
  - Product dose omission issue [Unknown]

NARRATIVE: CASE EVENT DATE: 20210101
